FAERS Safety Report 12650749 (Version 1)
Quarter: 2016Q3

REPORT INFORMATION
  Report Type: Spontaneous
  Country: US (occurrence: US)
  Receive Date: 20160815
  Receipt Date: 20160815
  Transmission Date: 20161109
  Serious: No
  Sender: FDA-Public Use
  Company Number: US-JAZZ-2016-US-004701

PATIENT
  Sex: Female

DRUGS (12)
  1. GABAPENTIN. [Concomitant]
     Active Substance: GABAPENTIN
  2. LORAZEPAM. [Concomitant]
     Active Substance: LORAZEPAM
  3. MODAFINIL. [Concomitant]
     Active Substance: MODAFINIL
  4. S-ADENOSYLMETHIONINE SULFATE P-TOLUENESULFONATE [Concomitant]
     Active Substance: ADEMETIONINE SULFATE TOSILATE
  5. XYREM [Suspect]
     Active Substance: SODIUM OXYBATE
     Dosage: DOSE ADJUSTMENTS
     Route: 048
  6. TRAMADOL HCL [Concomitant]
     Active Substance: TRAMADOL HYDROCHLORIDE
  7. XYREM [Suspect]
     Active Substance: SODIUM OXYBATE
     Indication: SLEEP DISORDER
     Dosage: 3 G, BID
     Route: 048
     Dates: start: 200502, end: 2008
  8. RESTASIS [Concomitant]
     Active Substance: CYCLOSPORINE
  9. XYREM [Suspect]
     Active Substance: SODIUM OXYBATE
     Dosage: 2 G, BID
     Route: 048
     Dates: start: 201602, end: 2016
  10. HYDROCODONE/ACETAMINOPHEN [Concomitant]
     Active Substance: ACETAMINOPHEN\HYDROCODONE
  11. FOSAMAX [Concomitant]
     Active Substance: ALENDRONATE SODIUM
  12. ZYRTEC-D [Concomitant]
     Active Substance: CETIRIZINE HYDROCHLORIDE\PSEUDOEPHEDRINE HYDROCHLORIDE

REACTIONS (4)
  - Therapeutic response unexpected [Unknown]
  - Pre-existing condition improved [Unknown]
  - Asthma [Unknown]
  - Viral infection [Unknown]

NARRATIVE: CASE EVENT DATE: 2016
